FAERS Safety Report 9460104 (Version 1)
Quarter: 2013Q3

REPORT INFORMATION
  Report Type: Spontaneous
  Country: GB (occurrence: GB)
  Receive Date: 20130815
  Receipt Date: 20130815
  Transmission Date: 20140515
  Serious: Yes (Other)
  Sender: FDA-Public Use
  Company Number: PHHY2013GB085272

PATIENT
  Sex: Female

DRUGS (2)
  1. CITALOPRAM [Suspect]
     Indication: DEPRESSION
     Dosage: 20 MG DAILY
  2. PAROXETINE [Suspect]
     Indication: DEPRESSION
     Dosage: 20 MG

REACTIONS (10)
  - Alcoholism [Recovered/Resolved]
  - Abnormal behaviour [Recovered/Resolved]
  - Alcohol poisoning [Recovered/Resolved]
  - Psychomotor hyperactivity [Recovered/Resolved]
  - Logorrhoea [Recovered/Resolved]
  - Memory impairment [Recovered/Resolved]
  - Disturbance in attention [Recovered/Resolved]
  - Indifference [Recovered/Resolved]
  - Coma [Recovered/Resolved]
  - Disinhibition [Recovered/Resolved]
